FAERS Safety Report 6751789-8 (Version None)
Quarter: 2010Q2

REPORT INFORMATION
  Report Type: 
  Country: None (occurrence: None)
  Receive Date: 20100602
  Receipt Date: 20100525
  Transmission Date: 20101027
  Serious: Yes (Other)
  Sender: FDA-Public Use
  Company Number: GB-JNJFOC-20100108467

PATIENT
  Sex: Female

DRUGS (4)
  1. STELARA [Suspect]
     Indication: PSORIASIS
     Route: 058
  2. PAROXETINE HCL [Concomitant]
     Indication: DEPRESSION
     Route: 065
  3. ADALAT [Concomitant]
     Indication: HYPERTENSION
     Route: 065
  4. FLUOXETINE [Concomitant]
     Indication: DEPRESSION
     Route: 065

REACTIONS (2)
  - BLOOD CREATININE INCREASED [None]
  - RENAL IMPAIRMENT [None]
